FAERS Safety Report 7973581-9 (Version None)
Quarter: 2011Q4

REPORT INFORMATION
  Report Type: 
  Country: None (occurrence: None)
  Receive Date: 20111213
  Receipt Date: 20111206
  Transmission Date: 20120403
  Serious: Yes (Hospitalization)
  Sender: FDA-Public Use
  Company Number: US-ALEXION PHARMACEUTICALS INC.-A201101838

PATIENT
  Sex: Male
  Weight: 83.9 kg

DRUGS (8)
  1. FOLIC ACID [Concomitant]
     Dosage: UNK
  2. OMEPRAZOLE [Concomitant]
     Dosage: UNK
  3. LACTULOSE [Concomitant]
     Dosage: UNK
  4. POTASSIUM CHLORIDE [Concomitant]
     Dosage: UNK
  5. RIFAMPIN [Concomitant]
     Dosage: UNK
  6. GABAPENTIN [Concomitant]
     Dosage: UNK
  7. COUMADIN [Concomitant]
     Dosage: UNK
  8. SOLIRIS [Suspect]
     Indication: PAROXYSMAL NOCTURNAL HAEMOGLOBINURIA
     Dosage: UNK
     Route: 042

REACTIONS (3)
  - PYREXIA [None]
  - PNEUMONIA [None]
  - HAEMOLYSIS [None]
